FAERS Safety Report 17546983 (Version 1)
Quarter: 2020Q1

REPORT INFORMATION
  Report Type: Spontaneous
  Country: US (occurrence: US)
  Receive Date: 20200316
  Receipt Date: 20200316
  Transmission Date: 20200409
  Serious: No
  Sender: FDA-Public Use
  Company Number: US-PFIZER INC-2020111030

PATIENT
  Age: 67 Year
  Sex: Female

DRUGS (1)
  1. XELJANZ XR [Suspect]
     Active Substance: TOFACITINIB CITRATE
     Dosage: 11 MG, UNK
     Dates: start: 202002

REACTIONS (6)
  - Joint swelling [Unknown]
  - Foot deformity [Unknown]
  - Peripheral swelling [Unknown]
  - Erythema [Unknown]
  - Pain [Unknown]
  - Gait disturbance [Unknown]
